FAERS Safety Report 6369273-2 (Version None)
Quarter: 2009Q3

REPORT INFORMATION
  Report Type: 
  Country: None (occurrence: None)
  Receive Date: 20090922
  Receipt Date: 20090909
  Transmission Date: 20100115
  Serious: Yes (Other)
  Sender: FDA-Public Use
  Company Number: DE-GENENTECH-290701

PATIENT
  Sex: Female

DRUGS (1)
  1. MABTHERA [Suspect]
     Indication: LYMPHOMA
     Dosage: UNK
     Route: 065

REACTIONS (1)
  - MIXED CONNECTIVE TISSUE DISEASE [None]
